FAERS Safety Report 4640991-7 (Version None)
Quarter: 2005Q2

REPORT INFORMATION
  Report Type: 
  Country: None (occurrence: None)
  Receive Date: 20050421
  Receipt Date: 20050404
  Transmission Date: 20051028
  Serious: Yes (Life-Threatening, Hospitalization)
  Sender: FDA-Public Use
  Company Number: FR-BOEHRINGER INGELHEIM PHARMACEUTICALS, INC.-2005-DE-01292GD

PATIENT
  Age: 71 Year
  Sex: Female

DRUGS (4)
  1. IPATROPIUM BROMIDE [Suspect]
     Indication: BRONCHIAL INFECTION
     Route: 055
     Dates: start: 20020201
  2. FLUPHENAZINE [Suspect]
     Indication: PSYCHOTIC DISORDER
     Route: 030
  3. AMOXICILLIN / CLAVULANIC ACID [Concomitant]
     Indication: BRONCHIAL INFECTION
     Dates: start: 20020201
  4. SALBUTAMOL [Concomitant]
     Indication: BRONCHIAL INFECTION
     Route: 055
     Dates: start: 20020201

REACTIONS (5)
  - ABDOMINAL DISTENSION [None]
  - ACUTE RESPIRATORY FAILURE [None]
  - ATELECTASIS [None]
  - DRUG INTERACTION [None]
  - IMPAIRED GASTRIC EMPTYING [None]
